FAERS Safety Report 25908511 (Version 2)
Quarter: 2025Q4

REPORT INFORMATION
  Report Type: Spontaneous
  Country: US (occurrence: US)
  Receive Date: 20251010
  Receipt Date: 20251023
  Transmission Date: 20260118
  Serious: Yes (Other)
  Sender: COOPERSURGICAL
  Company Number: US-COOPERSURGICAL, INC.-2025CPS007157

PATIENT
  Sex: Female
  Weight: 113.38 kg

DRUGS (1)
  1. PARAGARD T 380A [Suspect]
     Active Substance: COPPER
     Dosage: UNK
     Route: 015
     Dates: start: 20170124

REACTIONS (18)
  - Surgery [Not Recovered/Not Resolved]
  - Device breakage [Not Recovered/Not Resolved]
  - Foreign body in reproductive tract [Not Recovered/Not Resolved]
  - Complication of device removal [Not Recovered/Not Resolved]
  - Off label use [Recovered/Resolved]
  - Embedded device [Not Recovered/Not Resolved]
  - Device issue [Recovered/Resolved]
  - Urinary tract infection [Unknown]
  - Abdominal pain [Unknown]
  - Emotional distress [Unknown]
  - Sensation of foreign body [Unknown]
  - Uterine cervical laceration [Unknown]
  - Post-traumatic stress disorder [Unknown]
  - Abnormal uterine bleeding [Not Recovered/Not Resolved]
  - Muscle spasms [Unknown]
  - Pain [Recovered/Resolved]
  - Dysmenorrhoea [Unknown]
  - Device expulsion [Recovered/Resolved]

NARRATIVE: CASE EVENT DATE: 20170101
